FAERS Safety Report 4594903-5 (Version None)
Quarter: 2005Q1

REPORT INFORMATION
  Report Type: 
  Country: None (occurrence: None)
  Receive Date: 20050223
  Receipt Date: 20050214
  Transmission Date: 20050727
  Serious: Yes (Hospitalization)
  Sender: FDA-Public Use
  Company Number: 2005028766

PATIENT
  Age: 75 Year
  Sex: Male

DRUGS (12)
  1. ALDACTONE [Suspect]
     Indication: ILL-DEFINED DISORDER
     Dosage: 2 DOSE FORMS (UNK), ORAL
     Route: 048
     Dates: end: 20041229
  2. WARFARIN SODIUM [Suspect]
     Indication: ILL-DEFINED DISORDER
     Dosage: 2 DOSE FORMS (UNK), ORAL
     Route: 048
     Dates: start: 20040815
  3. PYGEUM AFRICANUM (PYGEUM AFRICANUM) [Suspect]
     Indication: ILL-DEFINED DISORDER
     Dosage: 2 DOSE FORMS (UNK), ORAL
     Route: 048
     Dates: end: 20041223
  4. SIMVASTATIN [Suspect]
     Indication: ILL-DEFINED DISORDER
     Dosage: 1 DOSE FORM (UNK), ORAL
     Route: 048
     Dates: end: 20041225
  5. DUTASTERIDE (DUTASTERIDE) [Suspect]
     Indication: ILL-DEFINED DISORDER
     Dosage: 1 DOSE FORM (UNK), ORAL
     Route: 048
     Dates: end: 20041225
  6. FUROSEMIDE [Concomitant]
  7. RETINOL (RETINOL) [Concomitant]
  8. RAMIPRIL (RAIMIPRIL) [Concomitant]
  9. OMEPRAZOLE [Concomitant]
  10. DUOVENT (FENOTEROL HYDROBROMIDE, IPRATROPIUM BROMIDE) [Concomitant]
  11. TAMSULOSIN HYDROCHLORIDE (TAMSULOSIN HYDROCHLORIDE) [Concomitant]
  12. CARVEDILOL [Concomitant]

REACTIONS (4)
  - CONDITION AGGRAVATED [None]
  - CONTUSION [None]
  - PURPURA [None]
  - THROMBOCYTOPENIA [None]
